FAERS Safety Report 20827297 (Version 2)
Quarter: 2022Q2

REPORT INFORMATION
  Report Type: Report from Study
  Country: CA (occurrence: CA)
  Receive Date: 20220513
  Receipt Date: 20220622
  Transmission Date: 20220721
  Serious: Yes (Other)
  Sender: FDA-Public Use
  Company Number: CA-NOVARTISPH-NVSC2022CA058289

PATIENT
  Age: 44 Year
  Sex: Male

DRUGS (5)
  1. ERELZI [Suspect]
     Active Substance: ETANERCEPT-SZZS
     Indication: Ankylosing spondylitis
     Dosage: 50 MG, QW
     Route: 058
     Dates: start: 20220224
  2. CELECOXIB [Concomitant]
     Active Substance: CELECOXIB
     Indication: Product used for unknown indication
     Dosage: UNK
     Route: 048
     Dates: start: 202105
  3. VITAMIN B [Concomitant]
     Active Substance: VITAMIN B
     Indication: Product used for unknown indication
     Dosage: 1 UNK, QW (DOSE-1)
     Route: 048
     Dates: start: 2019
  4. ERYTHROMYCIN [Concomitant]
     Active Substance: ERYTHROMYCIN
     Indication: Blepharitis
     Dosage: UNK UNK, BID
     Route: 061
     Dates: start: 20220310
  5. ERYTHROMYCIN [Concomitant]
     Active Substance: ERYTHROMYCIN
     Dosage: UNK, BID (APPLIQUER DANS LES 2 YEUX 2 FOIS PAR JOUR X 7 JOURS)
     Route: 061
     Dates: start: 20220310

REACTIONS (12)
  - Beta haemolytic streptococcal infection [Unknown]
  - Oropharyngeal discomfort [Unknown]
  - Ocular hyperaemia [Unknown]
  - Skin adhesion [Not Recovered/Not Resolved]
  - Skin plaque [Unknown]
  - Back pain [Unknown]
  - Nasopharyngitis [Unknown]
  - Cough [Unknown]
  - Oropharyngeal pain [Unknown]
  - Nasal congestion [Unknown]
  - Pyrexia [Unknown]
  - Injection site rash [Recovering/Resolving]

NARRATIVE: CASE EVENT DATE: 20220305
